FAERS Safety Report 8573300-1 (Version None)
Quarter: 2012Q3

REPORT INFORMATION
  Report Type: 
  Country: None (occurrence: None)
  Receive Date: 20120806
  Receipt Date: 20120730
  Transmission Date: 20120928
  Serious: No
  Sender: FDA-Public Use
  Company Number: US-BAYER-2012-076865

PATIENT

DRUGS (2)
  1. NYQUIL [Suspect]
  2. ALEVE (CAPLET) [Suspect]
     Route: 048

REACTIONS (1)
  - EUPHORIC MOOD [None]
